FAERS Safety Report 5097401-8 (Version None)
Quarter: 2006Q3

REPORT INFORMATION
  Report Type: 
  Country: None (occurrence: None)
  Receive Date: 20060828
  Receipt Date: 20060814
  Transmission Date: 20061208
  Serious: Yes (Other)
  Sender: FDA-Public Use
  Company Number: CHPA2006US08076

PATIENT
  Age: 57 Year
  Sex: Male
  Weight: 82.5 kg

DRUGS (1)
  1. EXCEDRIN EXTRA STRENGTH (NCH) (CAFFEINE  CITRATE, ACETYLSALICYLIC ACID [Suspect]
     Indication: PAIN
     Dosage: 8 TO 10 DF, QD, ORAL
     Route: 048

REACTIONS (5)
  - DIZZINESS [None]
  - DRUG ABUSER [None]
  - GASTROINTESTINAL ULCER HAEMORRHAGE [None]
  - MELAENA [None]
  - OVERDOSE [None]
